FAERS Safety Report 18459179 (Version 1)
Quarter: 2020Q4

REPORT INFORMATION
  Report Type: Spontaneous
  Country: GB (occurrence: GB)
  Receive Date: 20201103
  Receipt Date: 20201103
  Transmission Date: 20210114
  Serious: Yes (Other)
  Sender: FDA-Public Use
  Company Number: GB-MYLANLABS-2020M1091246

PATIENT
  Age: 66 Year
  Sex: Female

DRUGS (1)
  1. ZIDOVAL 7,5 MG/G GEL VAGINAL [Suspect]
     Active Substance: METRONIDAZOLE
     Indication: VAGINAL INFECTION
     Dosage: UNK, ONE 5G DOSE AT BEDTIME
     Route: 065
     Dates: start: 20201019, end: 20201021

REACTIONS (5)
  - Pain [Unknown]
  - Burns third degree [Unknown]
  - Vaginal ulceration [Unknown]
  - Hyperhidrosis [Unknown]
  - Vulvovaginal burning sensation [Unknown]
